FAERS Safety Report 5340954-2 (Version None)
Quarter: 2007Q2

REPORT INFORMATION
  Report Type: 
  Country: None (occurrence: None)
  Receive Date: 20070405
  Receipt Date: 20061102
  Transmission Date: 20071010
  Serious: No
  Sender: FDA-Public Use
  Company Number: US200606002041

PATIENT
  Age: 55 Year
  Sex: Female

DRUGS (5)
  1. CYMBALTA [Suspect]
     Indication: DEPRESSION
     Dosage: SEE IMAGE
     Dates: start: 20060101
  2. CYMBALTA [Suspect]
     Indication: DEPRESSION
     Dosage: SEE IMAGE
     Dates: start: 20060501
  3. WELLBUTRIN [Concomitant]
  4. PREVACID [Concomitant]
  5. VALTREX [Concomitant]

REACTIONS (2)
  - DECREASED ACTIVITY [None]
  - FATIGUE [None]
